FAERS Safety Report 21891255 (Version 2)
Quarter: 2023Q1

REPORT INFORMATION
  Report Type: Report from Study
  Country: US (occurrence: US)
  Receive Date: 20230120
  Receipt Date: 20230323
  Transmission Date: 20230418
  Serious: No
  Sender: FDA-Public Use
  Company Number: US-ABBVIE-4243053

PATIENT
  Age: 58 Year
  Sex: Female

DRUGS (2)
  1. SKYRIZI [Suspect]
     Active Substance: RISANKIZUMAB-RZAA
     Indication: Psoriasis
     Dosage: WEEK 0?FORM STRENGTH: 150 MILLIGRAM
     Route: 058
     Dates: start: 20221212, end: 20221212
  2. SKYRIZI [Suspect]
     Active Substance: RISANKIZUMAB-RZAA
     Dosage: WEEK 4, THEN EVERY 12 WEEKS THEREAFTER?FORM STRENGTH: 150 MILLIGRAM
     Route: 058
     Dates: start: 20230109

REACTIONS (2)
  - Off label use [Unknown]
  - Psoriasis [Unknown]

NARRATIVE: CASE EVENT DATE: 20221201
